FAERS Safety Report 5147851-6 (Version None)
Quarter: 2006Q4

REPORT INFORMATION
  Report Type: 
  Country: None (occurrence: None)
  Receive Date: 20060918
  Receipt Date: 20050722
  Transmission Date: 20070319
  Serious: Yes (Other)
  Sender: FDA-Public Use
  Company Number: US-JNJFOC-20050705304

PATIENT
  Age: 38 Year
  Sex: Female
  Weight: 79.8331 kg

DRUGS (6)
  1. TOPAMAX [Suspect]
     Indication: MIGRAINE PROPHYLAXIS
     Dosage: 100 MG,.1 IN 1 DAY, ORAL
     Route: 048
     Dates: start: 19970101
  2. DARVOCET [Concomitant]
  3. SOMA [Concomitant]
  4. CLONAZEPAM [Concomitant]
  5. ENBREL [Concomitant]
  6. AMOXICILLIN [Concomitant]

REACTIONS (4)
  - DRUG SCREEN POSITIVE [None]
  - LYMPHADENOPATHY [None]
  - TOOTH ABSCESS [None]
  - WEIGHT DECREASED [None]
